FAERS Safety Report 10960969 (Version 1)
Quarter: 2015Q1

REPORT INFORMATION
  Report Type: Spontaneous
  Country: US (occurrence: None)
  Receive Date: 20150326
  Receipt Date: 20150326
  Transmission Date: 20150721
  Serious: No
  Sender: FDA-Public Use
  Company Number: None

PATIENT
  Age: 75 Year
  Sex: Female

DRUGS (15)
  1. CARVEDILOL. [Suspect]
     Active Substance: CARVEDILOL
     Indication: BLOOD PRESSURE
     Dosage: BY MOUTH
  2. CRESTOR [Suspect]
     Active Substance: ROSUVASTATIN CALCIUM
  3. ALPRAZOLAM. [Suspect]
     Active Substance: ALPRAZOLAM
  4. FUROSEMIDE. [Concomitant]
     Active Substance: FUROSEMIDE
  5. CRESTOR [Concomitant]
     Active Substance: ROSUVASTATIN CALCIUM
  6. AMLODIPINE [Concomitant]
     Active Substance: AMLODIPINE BESYLATE
  7. SPERONOLACT [Concomitant]
  8. ECOTRIN [Concomitant]
     Active Substance: ASPIRIN
  9. SPIRONOLACTONE. [Suspect]
     Active Substance: SPIRONOLACTONE
  10. ALPRAZOLAM. [Concomitant]
     Active Substance: ALPRAZOLAM
  11. MAGOF [Concomitant]
  12. HYDRALAZINE [Concomitant]
     Active Substance: HYDRALAZINE HYDROCHLORIDE
  13. CARVEDILOL. [Concomitant]
     Active Substance: CARVEDILOL
  14. CARVEDILOL. [Suspect]
     Active Substance: CARVEDILOL
     Indication: DIABETES MELLITUS
     Dosage: BY MOUTH
  15. AMLODIPINE [Suspect]
     Active Substance: AMLODIPINE BESYLATE

REACTIONS (11)
  - Headache [None]
  - Alopecia [None]
  - Vision blurred [None]
  - Toothache [None]
  - Dry mouth [None]
  - Swelling face [None]
  - Peripheral swelling [None]
  - Muscle spasms [None]
  - Gingival swelling [None]
  - Unevaluable event [None]
  - Blood pressure increased [None]

NARRATIVE: CASE EVENT DATE: 20141224
